FAERS Safety Report 13259719 (Version 1)
Quarter: 2017Q1

REPORT INFORMATION
  Report Type: Spontaneous
  Country: US (occurrence: US)
  Receive Date: 20170221
  Receipt Date: 20170221
  Transmission Date: 20170428
  Serious: Yes (Hospitalization)
  Sender: FDA-Public Use
  Company Number: None

PATIENT
  Age: 71 Year
  Sex: Female

DRUGS (6)
  1. DUONEBS [Concomitant]
  2. ENALAPRIL [Concomitant]
     Active Substance: ENALAPRIL
  3. CINACALCET [Concomitant]
     Active Substance: CINACALCET
  4. SINGULAIR [Concomitant]
     Active Substance: MONTELUKAST SODIUM
  5. WARFARIN [Suspect]
     Active Substance: WARFARIN
     Indication: ACUTE MYOCARDIAL INFARCTION
     Route: 048
  6. FEOSIL [Concomitant]

REACTIONS (6)
  - International normalised ratio increased [None]
  - Occult blood positive [None]
  - Haemorrhage [None]
  - Oxygen saturation decreased [None]
  - Mental status changes [None]
  - Dyspnoea [None]

NARRATIVE: CASE EVENT DATE: 20161007
